FAERS Safety Report 7668008-0 (Version None)
Quarter: 2011Q3

REPORT INFORMATION
  Report Type: 
  Country: None (occurrence: None)
  Receive Date: 20110808
  Receipt Date: 20110804
  Transmission Date: 20111222
  Serious: No
  Sender: FDA-Public Use
  Company Number: US-PFIZER INC-2011105867

PATIENT
  Sex: Female
  Weight: 54.422 kg

DRUGS (4)
  1. LYRICA [Suspect]
     Indication: SPINAL COLUMN STENOSIS
  2. SYNTHROID [Concomitant]
     Indication: HYPOTHYROIDISM
     Dosage: 0.88 MG, DAILY
     Route: 048
  3. LIPITOR [Concomitant]
     Indication: BLOOD CHOLESTEROL INCREASED
     Dosage: 20 MG, DAILY
     Route: 048
  4. LYRICA [Suspect]
     Indication: SCIATICA
     Dosage: 100 MG, UNK
     Route: 048
     Dates: start: 20110513, end: 20110514

REACTIONS (2)
  - DRUG INTOLERANCE [None]
  - MALAISE [None]
